FAERS Safety Report 17743844 (Version 6)
Quarter: 2020Q3

REPORT INFORMATION
  Report Type: Spontaneous
  Country: US (occurrence: US)
  Receive Date: 20200505
  Receipt Date: 20200702
  Transmission Date: 20201102
  Serious: Yes (Death, Life-Threatening, Hospitalization, Other)
  Sender: FDA-Public Use
  Company Number: US-UNITED THERAPEUTICS-UNT-2020-006758

PATIENT
  Age: 11 Year
  Sex: Male
  Weight: 34.51 kg

DRUGS (2)
  1. REMODULIN [Suspect]
     Active Substance: TREPROSTINIL
     Indication: PULMONARY ARTERIAL HYPERTENSION
     Dosage: UNK, CONTINUING
     Route: 058
     Dates: start: 20200209, end: 20200429
  2. REMODULIN [Suspect]
     Active Substance: TREPROSTINIL
     Indication: HEART DISEASE CONGENITAL
     Dosage: 0.020 ?G/KG, CONTINUING
     Route: 058
     Dates: start: 2020

REACTIONS (4)
  - Cardiac failure [Fatal]
  - Pulmonary haemorrhage [Fatal]
  - Respiratory failure [Unknown]
  - Multiple organ dysfunction syndrome [Unknown]

NARRATIVE: CASE EVENT DATE: 2020
